FAERS Safety Report 8068681-1 (Version None)
Quarter: 2012Q1

REPORT INFORMATION
  Report Type: 
  Country: None (occurrence: None)
  Receive Date: 20120124
  Receipt Date: 20111116
  Transmission Date: 20120608
  Serious: Yes (Other)
  Sender: FDA-Public Use
  Company Number: US-AMGEN-USASP2011060480

PATIENT
  Sex: Female

DRUGS (3)
  1. XGEVA [Suspect]
     Indication: METASTASES TO BONE
     Dosage: UNK
  2. VITAMIN D [Concomitant]
     Dosage: 400 IU, UNK
  3. CALCIUM [Concomitant]
     Dosage: 1200 MG, UNK

REACTIONS (1)
  - HYPOCALCAEMIA [None]
